FAERS Safety Report 24385782 (Version 1)
Quarter: 2024Q4

REPORT INFORMATION
  Report Type: Spontaneous
  Country: US (occurrence: US)
  Receive Date: 20241001
  Receipt Date: 20241001
  Transmission Date: 20250115
  Serious: No
  Sender: ALKERMES
  Company Number: US-ALKERMES INC.-ALK-2024-002448

PATIENT
  Sex: Male

DRUGS (4)
  1. VIVITROL [Suspect]
     Active Substance: NALTREXONE
     Indication: Major depression
     Dosage: 380 MILLIGRAM, QMO
     Route: 030
     Dates: start: 202408
  2. VIVITROL [Suspect]
     Active Substance: NALTREXONE
     Indication: Anxiety disorder due to a general medical condition
  3. VIVITROL [Suspect]
     Active Substance: NALTREXONE
     Indication: Essential hypertension
  4. VIVITROL [Suspect]
     Active Substance: NALTREXONE
     Indication: Alcohol abuse

REACTIONS (4)
  - Off label use [Not Recovered/Not Resolved]
  - Dissociation [Unknown]
  - Anger [Unknown]
  - Depression [Unknown]

NARRATIVE: CASE EVENT DATE: 20240101
